FAERS Safety Report 10206769 (Version 1)
Quarter: 2014Q2

REPORT INFORMATION
  Report Type: Spontaneous
  Country: US (occurrence: None)
  Receive Date: 20140527
  Receipt Date: 20140527
  Transmission Date: 20141212
  Serious: Yes (Other)
  Sender: FDA-Public Use
  Company Number: None

PATIENT
  Age: 85 Year
  Sex: Female
  Weight: 59.42 kg

DRUGS (1)
  1. RANEXA [Suspect]
     Indication: ANGINA PECTORIS

REACTIONS (7)
  - Myoclonus [None]
  - Hyponatraemia [None]
  - Cardiac failure congestive [None]
  - Dizziness [None]
  - Orthostatic hypotension [None]
  - Nausea [None]
  - Retching [None]
